FAERS Safety Report 6533016-X (Version None)
Quarter: 2010Q1

REPORT INFORMATION
  Report Type: 
  Country: None (occurrence: None)
  Receive Date: 20100111
  Receipt Date: 20091002
  Transmission Date: 20100710
  Serious: Yes (Other)
  Sender: FDA-Public Use
  Company Number: IE-CELGENEUS-229-20484-09121744

PATIENT
  Sex: Female
  Weight: 3.14 kg

DRUGS (1)
  1. INNOHEP [Suspect]
     Route: 064
     Dates: start: 20051227, end: 20051229

REACTIONS (2)
  - DRUG EXPOSURE DURING PREGNANCY [None]
  - RESUSCITATION [None]
